FAERS Safety Report 5618601-1 (Version None)
Quarter: 2008Q1

REPORT INFORMATION
  Report Type: 
  Country: None (occurrence: None)
  Receive Date: 20080205
  Receipt Date: 20080205
  Transmission Date: 20080703
  Serious: Yes (Life-Threatening)
  Sender: FDA-Public Use
  Company Number: None

PATIENT
  Age: 54 Year
  Sex: Female
  Weight: 56.6996 kg

DRUGS (6)
  1. GEODON [Suspect]
     Indication: PSYCHOTIC DISORDER
     Dates: start: 20080107, end: 20080129
  2. CYMBALTA [Concomitant]
  3. PREMARIN [Concomitant]
  4. LORA TAB [Concomitant]
  5. FIORINAL [Concomitant]
  6. ASSORTMENT OF VITAMINS AND HERBS [Concomitant]

REACTIONS (8)
  - ARRHYTHMIA [None]
  - ASTHENIA [None]
  - CARDIAC FAILURE CONGESTIVE [None]
  - CELLULITIS [None]
  - DYSPHAGIA [None]
  - DYSPNOEA [None]
  - OEDEMA PERIPHERAL [None]
  - RENAL IMPAIRMENT [None]
